FAERS Safety Report 4934127-2 (Version None)
Quarter: 2006Q1

REPORT INFORMATION
  Report Type: 
  Country: None (occurrence: None)
  Receive Date: 20060303
  Receipt Date: 20060220
  Transmission Date: 20060701
  Serious: Yes (Other)
  Sender: FDA-Public Use
  Company Number: 2005169451

PATIENT
  Age: 50 Year
  Sex: Female
  Weight: 72.5755 kg

DRUGS (3)
  1. NARDIL [Suspect]
     Indication: ANXIETY
     Dosage: 15 MG (15 MG, 1 IN 1 D), ORAL
     Route: 048
  2. VITAMINS (VITAMINS) [Concomitant]
  3. ASPIRIN [Concomitant]

REACTIONS (11)
  - ANXIETY [None]
  - CONDITION AGGRAVATED [None]
  - DIZZINESS POSTURAL [None]
  - FEELING ABNORMAL [None]
  - FLUSHING [None]
  - NEUROPATHY PERIPHERAL [None]
  - PANIC DISORDER [None]
  - PARAESTHESIA [None]
  - PHARMACEUTICAL PRODUCT COMPLAINT [None]
  - STOMACH DISCOMFORT [None]
  - VASCULAR STENT INSERTION [None]
